FAERS Safety Report 18231872 (Version 1)
Quarter: 2020Q3

REPORT INFORMATION
  Report Type: Spontaneous
  Country: US (occurrence: US)
  Receive Date: 20200903
  Receipt Date: 20200903
  Transmission Date: 20201103
  Serious: Yes (Life-Threatening, Hospitalization, Other)
  Sender: FDA-Public Use
  Company Number: None

PATIENT
  Age: 4 Month
  Sex: Female
  Weight: 74.25 kg

DRUGS (1)
  1. WARFARIN 6MG TAB CIT, (GENERIC) COUMADIN 6MG TAB [Suspect]
     Active Substance: WARFARIN SODIUM
     Indication: ANTICOAGULANT THERAPY
     Route: 048
     Dates: start: 20200507, end: 20200517

REACTIONS (3)
  - Aneurysm [None]
  - International normalised ratio increased [None]
  - Cerebrovascular accident [None]

NARRATIVE: CASE EVENT DATE: 20200517
